FAERS Safety Report 8335228-1 (Version None)
Quarter: 2012Q2

REPORT INFORMATION
  Report Type: 
  Country: None (occurrence: None)
  Receive Date: 20120503
  Receipt Date: 20120420
  Transmission Date: 20120825
  Serious: Yes (Life-Threatening, Hospitalization, Other)
  Sender: FDA-Public Use
  Company Number: US-MYLANLABS-2009AC000069

PATIENT
  Age: 55 Year
  Sex: Male
  Weight: 61.69 kg

DRUGS (30)
  1. POTASSIUM CHLORIDE [Concomitant]
  2. POTASSIUM CHLORIDE [Concomitant]
  3. COREG [Concomitant]
  4. ALPRAZOLAM [Concomitant]
  5. BIDIL [Concomitant]
  6. VANCOMYCIN [Concomitant]
  7. PRINIVIL [Concomitant]
  8. CLONIDINE [Concomitant]
  9. ADVAIR DISKUS 100/50 [Concomitant]
  10. ATIVAN [Concomitant]
  11. ZINACEF [Concomitant]
  12. LASIX [Concomitant]
     Route: 042
  13. LASIX [Concomitant]
  14. SURFAK [Concomitant]
  15. POTASSIUM CHLORIDE [Concomitant]
  16. DIGOXIN [Suspect]
     Indication: CARDIOMYOPATHY
     Route: 048
     Dates: start: 19870810, end: 20091015
  17. MEXITIL [Concomitant]
  18. XANAX [Concomitant]
  19. AMIODARONE HCL [Concomitant]
  20. ASPIRIN [Concomitant]
  21. QUINIDINE HCL [Concomitant]
  22. CARVEDILOL [Concomitant]
  23. QUINIDINE HCL [Concomitant]
  24. AMOXICILLIN [Concomitant]
  25. IBUPROFEN (ADVIL) [Concomitant]
  26. ALDACTONE [Concomitant]
  27. LISINOPRIL [Concomitant]
  28. AMIODARONE HCL [Concomitant]
     Dosage: AND DRIP
  29. QUININE SULFATE [Concomitant]
  30. DIURETICS [Concomitant]

REACTIONS (135)
  - ILL-DEFINED DISORDER [None]
  - DYSPNOEA [None]
  - WAIST CIRCUMFERENCE INCREASED [None]
  - VENTRICULAR TACHYCARDIA [None]
  - ASTHMA [None]
  - ALANINE AMINOTRANSFERASE INCREASED [None]
  - BLOOD CREATINE PHOSPHOKINASE MB INCREASED [None]
  - BREATH SOUNDS ABNORMAL [None]
  - CONDUCTION DISORDER [None]
  - DEVICE INTOLERANCE [None]
  - ERYTHEMA [None]
  - HEADACHE [None]
  - TOBACCO USER [None]
  - X-RAY LIMB ABNORMAL [None]
  - INJURY [None]
  - MITRAL VALVE INCOMPETENCE [None]
  - EJECTION FRACTION DECREASED [None]
  - BUNDLE BRANCH BLOCK LEFT [None]
  - PLEURAL EFFUSION [None]
  - DISEASE PROGRESSION [None]
  - ELECTROCARDIOGRAM QT PROLONGED [None]
  - CARDIAC FIBRILLATION [None]
  - ALCOHOLIC [None]
  - ANXIETY DISORDER [None]
  - BLOOD CREATINE INCREASED [None]
  - CARDIOVERSION [None]
  - CONDITION AGGRAVATED [None]
  - CONSTIPATION [None]
  - DEPRESSION [None]
  - DYSPEPSIA [None]
  - EXOSTOSIS [None]
  - IMPLANTABLE DEFIBRILLATOR REPLACEMENT [None]
  - NASAL CONGESTION [None]
  - NYSTAGMUS [None]
  - IMPLANTABLE DEFIBRILLATOR INSERTION [None]
  - ATELECTASIS [None]
  - PULMONARY OEDEMA [None]
  - CARDIAC ARREST [None]
  - BRONCHIAL HYPERREACTIVITY [None]
  - BRONCHITIS [None]
  - CARDIAC FLUTTER [None]
  - DEATH OF RELATIVE [None]
  - DECREASED APPETITE [None]
  - DIARRHOEA [None]
  - DILATATION VENTRICULAR [None]
  - DRUG INTOLERANCE [None]
  - FEAR OF DEATH [None]
  - FLUSHING [None]
  - GENERAL PHYSICAL HEALTH DETERIORATION [None]
  - HYPOKINESIA [None]
  - INFLUENZA [None]
  - OSTEOARTHRITIS [None]
  - PULMONARY ARTERIAL PRESSURE INCREASED [None]
  - SINUS CONGESTION [None]
  - ECONOMIC PROBLEM [None]
  - TRICUSPID VALVE INCOMPETENCE [None]
  - DYSPNOEA EXERTIONAL [None]
  - DILATATION ATRIAL [None]
  - CARDIAC VALVE DISEASE [None]
  - BACK PAIN [None]
  - BLOOD UREA INCREASED [None]
  - DIZZINESS [None]
  - FEELING ABNORMAL [None]
  - HEART SOUNDS ABNORMAL [None]
  - LUNG DISORDER [None]
  - OEDEMA PERIPHERAL [None]
  - PAIN IN EXTREMITY [None]
  - DEVICE MALFUNCTION [None]
  - VENTRICULAR FIBRILLATION [None]
  - THROMBOPHLEBITIS [None]
  - ARRHYTHMIA [None]
  - UNRESPONSIVE TO STIMULI [None]
  - CELLULITIS [None]
  - LEFT VENTRICULAR DYSFUNCTION [None]
  - DISEASE RECURRENCE [None]
  - RENAL FAILURE CHRONIC [None]
  - ANXIETY [None]
  - COUGH [None]
  - ELECTROCARDIOGRAM LOW VOLTAGE [None]
  - FAMILY STRESS [None]
  - LOCAL SWELLING [None]
  - NERVOUSNESS [None]
  - TREATMENT NONCOMPLIANCE [None]
  - CARDIAC FAILURE CONGESTIVE [None]
  - ABDOMINAL DISTENSION [None]
  - CHANGE OF BOWEL HABIT [None]
  - CARDIOMEGALY [None]
  - BLOOD GLUCOSE INCREASED [None]
  - CENTRAL OBESITY [None]
  - PALPITATIONS [None]
  - CARDIOMYOPATHY ALCOHOLIC [None]
  - AORTIC ARTERIOSCLEROSIS [None]
  - ASPARTATE AMINOTRANSFERASE INCREASED [None]
  - BLOOD POTASSIUM INCREASED [None]
  - CHEST X-RAY ABNORMAL [None]
  - DIASTOLIC DYSFUNCTION [None]
  - DISCOMFORT [None]
  - ECHOCARDIOGRAM ABNORMAL [None]
  - ELECTRIC SHOCK [None]
  - ELECTROCARDIOGRAM AMBULATORY ABNORMAL [None]
  - FEAR [None]
  - HEART RATE IRREGULAR [None]
  - LABORATORY TEST ABNORMAL [None]
  - LUNG INFILTRATION [None]
  - LYMPHADENOPATHY [None]
  - MOOD ALTERED [None]
  - NAUSEA [None]
  - SINUS HEADACHE [None]
  - STAPHYLOCOCCUS TEST POSITIVE [None]
  - VENTRICULAR EXTRASYSTOLES [None]
  - TOXICITY TO VARIOUS AGENTS [None]
  - ORTHOPNOEA [None]
  - ARTHRALGIA [None]
  - BLOOD PRESSURE INCREASED [None]
  - BRAIN NATRIURETIC PEPTIDE INCREASED [None]
  - CARDIAC MURMUR [None]
  - CARDIOACTIVE DRUG LEVEL INCREASED [None]
  - DRUG LEVEL ABOVE THERAPEUTIC [None]
  - EX-TOBACCO USER [None]
  - JOINT INJURY [None]
  - RESPIRATORY TRACT CONGESTION [None]
  - UPPER RESPIRATORY TRACT INFECTION [None]
  - CARDIOMYOPATHY [None]
  - PULMONARY HYPERTENSION [None]
  - ABDOMINAL DISCOMFORT [None]
  - COMPUTERISED TOMOGRAM THORAX ABNORMAL [None]
  - CORRECTIVE LENS USER [None]
  - HEART RATE INCREASED [None]
  - HYPOVOLAEMIA [None]
  - INFECTION [None]
  - LEFT ATRIAL DILATATION [None]
  - OROPHARYNGEAL PAIN [None]
  - PRODUCTIVE COUGH [None]
  - REFUSAL OF TREATMENT BY PATIENT [None]
  - TROPONIN INCREASED [None]
